FAERS Safety Report 7412285-8 (Version None)
Quarter: 2011Q2

REPORT INFORMATION
  Report Type: 
  Country: None (occurrence: None)
  Receive Date: 20110413
  Receipt Date: 20110404
  Transmission Date: 20111010
  Serious: Yes (Hospitalization, Other)
  Sender: FDA-Public Use
  Company Number: US-ASTRAZENECA-2011SE13419

PATIENT
  Age: 77 Year
  Sex: Female

DRUGS (1)
  1. NEXIUM [Suspect]
     Route: 048

REACTIONS (7)
  - INTERVERTEBRAL DISC PROTRUSION [None]
  - MALAISE [None]
  - NASOPHARYNGITIS [None]
  - LOSS OF CONSCIOUSNESS [None]
  - CONSTIPATION [None]
  - BACK PAIN [None]
  - FALL [None]
